FAERS Safety Report 6610581-5 (Version None)
Quarter: 2010Q1

REPORT INFORMATION
  Report Type: 
  Country: None (occurrence: None)
  Receive Date: 20100302
  Receipt Date: 20100217
  Transmission Date: 20100710
  Serious: Yes (Other)
  Sender: FDA-Public Use
  Company Number: JP-PFIZER INC-2010020109

PATIENT
  Age: 41 Year
  Sex: Female

DRUGS (6)
  1. RELPAX [Suspect]
     Indication: HEADACHE
     Dosage: UNK
     Route: 048
     Dates: start: 20040325
  2. LUVOX [Concomitant]
     Dosage: UNK
     Route: 048
  3. RIVOTRIL [Concomitant]
     Dosage: UNK
     Route: 048
  4. DEPAKENE [Concomitant]
     Dosage: UNK
     Route: 048
  5. ZOLPIDEM TARTRATE [Concomitant]
     Dosage: UNK
     Route: 048
  6. ROHYPNOL [Concomitant]
     Dosage: UNK
     Route: 048

REACTIONS (2)
  - HYPERTONIC BLADDER [None]
  - POLLAKIURIA [None]
